FAERS Safety Report 6815057-8 (Version None)
Quarter: 2010Q3

REPORT INFORMATION
  Report Type: 
  Country: None (occurrence: None)
  Receive Date: 20100702
  Receipt Date: 20100625
  Transmission Date: 20110219
  Serious: Yes (Hospitalization)
  Sender: FDA-Public Use
  Company Number: JP-NOVOPROD-308445

PATIENT
  Age: 61 Year
  Sex: Male
  Weight: 44 kg

DRUGS (5)
  1. LEVEMIR [Suspect]
     Indication: DIABETES MELLITUS
     Dosage: 6 U, QD
     Route: 058
     Dates: start: 20100416, end: 20100419
  2. NOVORAPID CHU FLEXPEN [Suspect]
     Indication: DIABETES MELLITUS
     Dosage: 20 U, QD
     Route: 058
     Dates: start: 20100416, end: 20100419
  3. NOVOLIN N [Suspect]
     Indication: TYPE 1 DIABETES MELLITUS
     Route: 058
  4. VEEN-F [Concomitant]
     Indication: DIABETIC KETOACIDOSIS
     Dosage: 2500 ML, QD
     Route: 042
     Dates: start: 20100415, end: 20100427
  5. SOLITA-T3 [Concomitant]
     Indication: DIABETIC KETOACIDOSIS
     Dosage: UNK
     Dates: start: 20100418, end: 20100427

REACTIONS (4)
  - DIABETIC KETOACIDOSIS [None]
  - HYPOGLYCAEMIA [None]
  - HYPOGLYCAEMIC ENCEPHALOPATHY [None]
  - LIVER DISORDER [None]
